FAERS Safety Report 6085532-5 (Version None)
Quarter: 2009Q1

REPORT INFORMATION
  Report Type: 
  Country: None (occurrence: None)
  Receive Date: 20090220
  Receipt Date: 20090216
  Transmission Date: 20090719
  Serious: Yes (Hospitalization, Other)
  Sender: FDA-Public Use
  Company Number: JP-AVENTIS-200813663JP

PATIENT
  Age: 56 Year
  Sex: Female
  Weight: 44.5 kg

DRUGS (12)
  1. TAXOTERE [Suspect]
     Route: 041
     Dates: start: 20071126, end: 20071126
  2. EPIRUBICIN [Concomitant]
  3. CYCLOPHOSPHAMIDE [Concomitant]
  4. TAXOL [Concomitant]
     Dates: start: 20070827, end: 20070903
  5. KYTRIL                             /01178101/ [Concomitant]
     Route: 042
     Dates: start: 20071105, end: 20071126
  6. DECADRON [Concomitant]
     Route: 042
     Dates: start: 20071105, end: 20071126
  7. DECADRON [Concomitant]
     Route: 048
     Dates: start: 20071105, end: 20071126
  8. FARMORUBICIN                       /00699301/ [Concomitant]
     Dates: start: 20070528, end: 20070730
  9. ENDOXAN [Concomitant]
     Dates: start: 20070528, end: 20070730
  10. ALLELOCK [Concomitant]
     Indication: RASH
     Route: 048
     Dates: start: 20071105, end: 20071126
  11. DERMOVATE [Concomitant]
     Indication: RASH
     Route: 061
     Dates: start: 20071105, end: 20071126
  12. PRIMPERAN                          /00041901/ [Concomitant]
     Route: 048
     Dates: start: 20071105, end: 20071126

REACTIONS (2)
  - DERMATOMYOSITIS [None]
  - WHITE BLOOD CELL COUNT DECREASED [None]
